FAERS Safety Report 6006998-2 (Version None)
Quarter: 2008Q4

REPORT INFORMATION
  Report Type: 
  Country: None (occurrence: None)
  Receive Date: 20081217
  Receipt Date: 20080114
  Transmission Date: 20090506
  Serious: Yes (Other)
  Sender: FDA-Public Use
  Company Number: US-ASTRAZENECA-2007UW28344

PATIENT
  Age: 29652 Day
  Sex: Female
  Weight: 42.6 kg

DRUGS (4)
  1. CRESTOR [Suspect]
     Route: 048
     Dates: start: 20040821
  2. CRESTOR [Suspect]
     Dosage: ALTERNATING WITH 10MG AND 20MG
     Route: 048
     Dates: start: 20050201, end: 20071118
  3. NORVASC [Concomitant]
     Indication: HYPERTENSION
     Dates: start: 20050809
  4. ASPIRIN [Concomitant]

REACTIONS (1)
  - LIVER FUNCTION TEST ABNORMAL [None]
